FAERS Safety Report 22614054 (Version 2)
Quarter: 2023Q2

REPORT INFORMATION
  Report Type: Report from Study
  Country: US (occurrence: US)
  Receive Date: 20230619
  Receipt Date: 20230630
  Transmission Date: 20230722
  Serious: Yes (Hospitalization, Other)
  Sender: FDA-Public Use
  Company Number: US-CELGENE-USA-20210808315

PATIENT
  Age: 37 Year
  Sex: Female

DRUGS (27)
  1. OZANIMOD [Suspect]
     Active Substance: OZANIMOD
     Indication: Colitis ulcerative
     Route: 048
     Dates: start: 20180711
  2. OZANIMOD [Suspect]
     Active Substance: OZANIMOD
     Route: 048
     Dates: start: 20180815, end: 20180924
  3. OZANIMOD [Suspect]
     Active Substance: OZANIMOD
     Route: 048
     Dates: start: 20180924, end: 20181119
  4. OZANIMOD [Suspect]
     Active Substance: OZANIMOD
     Route: 048
     Dates: start: 20181119, end: 20190130
  5. OZANIMOD [Suspect]
     Active Substance: OZANIMOD
     Route: 048
     Dates: start: 20190130, end: 20190424
  6. OZANIMOD [Suspect]
     Active Substance: OZANIMOD
     Route: 048
     Dates: start: 20190424, end: 20190731
  7. OZANIMOD [Suspect]
     Active Substance: OZANIMOD
     Route: 048
     Dates: start: 20190731, end: 20190828
  8. OZANIMOD [Suspect]
     Active Substance: OZANIMOD
     Route: 048
     Dates: start: 20190828, end: 20191002
  9. OZANIMOD [Suspect]
     Active Substance: OZANIMOD
     Route: 048
     Dates: start: 20191002, end: 20191113
  10. OZANIMOD [Suspect]
     Active Substance: OZANIMOD
     Route: 048
     Dates: start: 20191113, end: 20191223
  11. OZANIMOD [Suspect]
     Active Substance: OZANIMOD
     Route: 048
     Dates: start: 20191223, end: 20200318
  12. OZANIMOD [Suspect]
     Active Substance: OZANIMOD
     Route: 048
     Dates: start: 20200318, end: 20200617
  13. OZANIMOD [Suspect]
     Active Substance: OZANIMOD
     Route: 048
     Dates: start: 20200617, end: 20201001
  14. OZANIMOD [Suspect]
     Active Substance: OZANIMOD
     Route: 048
     Dates: start: 20201001, end: 20201216
  15. OZANIMOD [Suspect]
     Active Substance: OZANIMOD
     Route: 048
     Dates: start: 20201216, end: 20210310
  16. OZANIMOD [Suspect]
     Active Substance: OZANIMOD
     Route: 048
     Dates: start: 20210310, end: 20210520
  17. OZANIMOD [Suspect]
     Active Substance: OZANIMOD
     Route: 048
     Dates: start: 20210520, end: 20210805
  18. OZANIMOD [Suspect]
     Active Substance: OZANIMOD
     Dosage: INTERRUPTED ON 23-AUG-2021 IN THE RESPONSE TO THE EVENT
     Route: 048
     Dates: start: 20210805, end: 20211028
  19. OZANIMOD [Suspect]
     Active Substance: OZANIMOD
     Route: 048
     Dates: start: 20211028, end: 20220120
  20. OZANIMOD [Suspect]
     Active Substance: OZANIMOD
     Route: 048
     Dates: start: 20220426, end: 20221013
  21. OZANIMOD [Suspect]
     Active Substance: OZANIMOD
     Route: 048
     Dates: start: 20221013, end: 20230322
  22. OZANIMOD [Suspect]
     Active Substance: OZANIMOD
     Route: 048
     Dates: start: 20230516
  23. APRISO [Concomitant]
     Active Substance: MESALAMINE
     Indication: Colitis ulcerative
     Dosage: 1.5 GRAM
     Route: 048
     Dates: start: 20180516
  24. ACETAMINOPHEN [Concomitant]
     Active Substance: ACETAMINOPHEN
     Indication: Pain
     Dosage: 1000 MILLIGRAM
     Route: 048
     Dates: start: 20210823
  25. POTASSIUM CHLORIDE [Concomitant]
     Active Substance: POTASSIUM CHLORIDE
     Indication: Hypokalaemia
     Dosage: 20 MEQ
     Route: 048
     Dates: start: 20210823
  26. CEFTRIAXONE [Concomitant]
     Active Substance: CEFTRIAXONE
     Indication: COVID-19
     Dosage: 1 GRAM
     Dates: start: 20210823, end: 20210824
  27. LYRICA [Concomitant]
     Active Substance: PREGABALIN
     Indication: Herpes zoster
     Dosage: 1 GRAM
     Route: 048
     Dates: start: 20210201

REACTIONS (1)
  - Transient ischaemic attack [Recovered/Resolved]

NARRATIVE: CASE EVENT DATE: 20210823
